FAERS Safety Report 18842570 (Version 1)
Quarter: 2021Q1

REPORT INFORMATION
  Report Type: Spontaneous
  Country: US (occurrence: US)
  Receive Date: 20210203
  Receipt Date: 20210203
  Transmission Date: 20210419
  Serious: No
  Sender: FDA-Public Use
  Company Number: US-GALDERMA-US2020043284

PATIENT
  Age: 66 Year
  Sex: Male

DRUGS (1)
  1. SOOLANTRA [Suspect]
     Active Substance: IVERMECTIN
     Indication: ROSACEA
     Dosage: 1%,
     Route: 061
     Dates: end: 20200920

REACTIONS (6)
  - Intentional underdose [Recovered/Resolved]
  - Rosacea [Recovered/Resolved]
  - Rash macular [Not Recovered/Not Resolved]
  - Erythema [Recovering/Resolving]
  - Skin discomfort [Recovered/Resolved]
  - Intentional product misuse [Recovered/Resolved]
